FAERS Safety Report 24826966 (Version 1)
Quarter: 2025Q1

REPORT INFORMATION
  Report Type: Spontaneous
  Country: US (occurrence: US)
  Receive Date: 20250109
  Receipt Date: 20250109
  Transmission Date: 20250409
  Serious: No
  Sender: VERONA PHARMA
  Company Number: US-VERONA PHARMA-VER-000470

PATIENT
  Sex: Female

DRUGS (1)
  1. OHTUVAYRE [Suspect]
     Active Substance: ENSIFENTRINE
     Indication: Product used for unknown indication

REACTIONS (2)
  - Wound secretion [Unknown]
  - Oedema peripheral [Unknown]
